FAERS Safety Report 6163977-2 (Version None)
Quarter: 2009Q2

REPORT INFORMATION
  Report Type: 
  Country: None (occurrence: None)
  Receive Date: 20090422
  Receipt Date: 20090410
  Transmission Date: 20091009
  Serious: Yes (Hospitalization)
  Sender: FDA-Public Use
  Company Number: BE-PFIZER INC-2008017951

PATIENT

DRUGS (7)
  1. SUNITINIB MALATE [Suspect]
     Indication: BREAST CANCER
     Dosage: 37.5 MG, 1X/DAY
     Route: 048
     Dates: start: 20080204, end: 20080220
  2. AMLODIPINE BESYLATE [Concomitant]
     Indication: HYPERTENSION
     Dosage: TOTAL DOSE: 40MG
     Route: 048
     Dates: start: 20080218, end: 20080220
  3. RANITIDINE [Concomitant]
     Dates: start: 20071025, end: 20080220
  4. ZOLEDRONIC ACID [Concomitant]
     Dates: start: 20061201
  5. ALPRAZOLAM [Concomitant]
     Dates: end: 20080220
  6. TORASEMIDE [Concomitant]
     Dates: end: 20080220
  7. MEBEVERINE HYDROCHLORIDE [Concomitant]
     Dates: start: 20080117, end: 20080220

REACTIONS (1)
  - ENCEPHALOPATHY [None]
